FAERS Safety Report 9751835 (Version 4)
Quarter: 2014Q1

REPORT INFORMATION
  Report Type: Spontaneous
  Country: IT (occurrence: IT)
  Receive Date: 20131213
  Receipt Date: 20140203
  Transmission Date: 20141002
  Serious: Yes (Other)
  Sender: FDA-Public Use
  Company Number: IT-ROCHE-1315697

PATIENT
  Age: 70 Year
  Sex: Female
  Weight: 63 kg

DRUGS (4)
  1. PEGASYS [Suspect]
     Indication: HEPATITIS C
     Route: 058
     Dates: start: 20130923, end: 20131118
  2. COPEGUS [Concomitant]
     Indication: HEPATITIS C
     Dosage: 2 TABS IN THE MORNING AND 3 IN THE EVENING
     Route: 048
     Dates: start: 20130923, end: 20131126
  3. COPEGUS [Concomitant]
     Route: 048
  4. PSYLLIUM [Concomitant]

REACTIONS (1)
  - Retinal ischaemia [Recovered/Resolved]
